FAERS Safety Report 11028938 (Version 2)
Quarter: 2015Q2

REPORT INFORMATION
  Report Type: Spontaneous
  Country: US (occurrence: US)
  Receive Date: 20150414
  Receipt Date: 20150525
  Transmission Date: 20150821
  Serious: No
  Sender: FDA-Public Use
  Company Number: US-JNJFOC-20120206823

PATIENT
  Sex: Female
  Weight: 90.72 kg

DRUGS (2)
  1. ALLEGRA [Concomitant]
     Active Substance: FEXOFENADINE HYDROCHLORIDE
     Indication: MULTIPLE ALLERGIES
     Route: 065
  2. ORTHO TRI CYCLEN LO [Suspect]
     Active Substance: ETHINYL ESTRADIOL\NORGESTIMATE
     Indication: CONTRACEPTION
     Route: 048
     Dates: start: 2008, end: 20120204

REACTIONS (6)
  - Inappropriate schedule of drug administration [Recovered/Resolved]
  - Uterine spasm [Unknown]
  - Nausea [Recovered/Resolved]
  - Ear infection [Recovered/Resolved]
  - Menorrhagia [Unknown]
  - Weight loss poor [Unknown]

NARRATIVE: CASE EVENT DATE: 2011
